FAERS Safety Report 5927442-7 (Version None)
Quarter: 2008Q4

REPORT INFORMATION
  Report Type: 
  Country: None (occurrence: None)
  Receive Date: 20081022
  Receipt Date: 20081022
  Transmission Date: 20090506
  Serious: Yes (Life-Threatening, Hospitalization, Other)
  Sender: FDA-Public Use
  Company Number: None

PATIENT
  Sex: Male
  Weight: 145.151 kg

DRUGS (1)
  1. ABILIFY [Suspect]
     Indication: AFFECTIVE DISORDER
     Dosage: 5 MG DAILY ORAL
     Route: 048
     Dates: start: 20080829, end: 20080908

REACTIONS (8)
  - AGITATION [None]
  - ANURIA [None]
  - DEHYDRATION [None]
  - DIZZINESS [None]
  - EXTRAPYRAMIDAL DISORDER [None]
  - FALL [None]
  - INSOMNIA [None]
  - SHOCK [None]
